FAERS Safety Report 19813601 (Version 1)
Quarter: 2021Q3

REPORT INFORMATION
  Report Type: Spontaneous
  Country: US (occurrence: US)
  Receive Date: 20210909
  Receipt Date: 20210909
  Transmission Date: 20211014
  Serious: No
  Sender: FDA-Public Use
  Company Number: None

PATIENT
  Sex: Female

DRUGS (2)
  1. TEMOZOLOMIDE. [Suspect]
     Active Substance: TEMOZOLOMIDE
     Indication: GALLBLADDER CANCER
     Dosage: ?          OTHER FREQUENCY:QD 5/28 DAYS;?
     Route: 048
  2. CAPECITABINE. [Suspect]
     Active Substance: CAPECITABINE
     Indication: GALLBLADDER CANCER
     Dosage: ?          OTHER FREQUENCY:500AM 1000PM 14DAY;?

REACTIONS (1)
  - Disease progression [None]
